FAERS Safety Report 8345979-0 (Version None)
Quarter: 2012Q2

REPORT INFORMATION
  Report Type: 
  Country: None (occurrence: None)
  Receive Date: 20120509
  Receipt Date: 20120122
  Transmission Date: 20120825
  Serious: No
  Sender: FDA-Public Use
  Company Number: US-PFIZER INC-2012111150

PATIENT

DRUGS (2)
  1. PRISTIQ [Suspect]
     Dosage: 100 MG, (EVERY OTHER DAY)
  2. PRISTIQ [Suspect]
     Dosage: 50 MG, (ON THE DAY NOT TAKING 100MG)

REACTIONS (1)
  - HEADACHE [None]
